FAERS Safety Report 6322135-9 (Version None)
Quarter: 2009Q3

REPORT INFORMATION
  Report Type: 
  Country: None (occurrence: None)
  Receive Date: 20090821
  Receipt Date: 20090821
  Transmission Date: 20100115
  Serious: Yes (Other)
  Sender: FDA-Public Use
  Company Number: None

PATIENT
  Sex: Male

DRUGS (1)
  1. AMPHETAMINE SALTS RANBAXY [Suspect]
     Indication: ATTENTION DEFICIT/HYPERACTIVITY DISORDER
     Dosage: 20MG TWICE DAILY PO
     Route: 048

REACTIONS (8)
  - CONFUSIONAL STATE [None]
  - HEADACHE [None]
  - HYPOPHAGIA [None]
  - INSOMNIA [None]
  - MALAISE [None]
  - PRODUCT QUALITY ISSUE [None]
  - PSYCHOTIC DISORDER [None]
  - VOMITING [None]
